FAERS Safety Report 7006545-2 (Version None)
Quarter: 2010Q3

REPORT INFORMATION
  Report Type: 
  Country: None (occurrence: None)
  Receive Date: 20100921
  Receipt Date: 20100921
  Transmission Date: 20110219
  Serious: Yes (Congenital Anomaly)
  Sender: FDA-Public Use
  Company Number: None

PATIENT
  Age: 23 Year
  Sex: Male
  Weight: 63.5036 kg

DRUGS (5)
  1. INVEGA SUSTENNA [Suspect]
     Indication: PSYCHOTIC DISORDER
     Dosage: MONTHLY INJECTION
     Dates: start: 20100826, end: 20100920
  2. BENZTROPINE MESYLATE [Concomitant]
  3. GENERIC FOR COGENTIN [Concomitant]
  4. PROPRANOLOL [Concomitant]
  5. GENERIC FOR INDERAL [Concomitant]

REACTIONS (21)
  - ABNORMAL BEHAVIOUR [None]
  - ASTHENIA [None]
  - BLADDER DISORDER [None]
  - BONE PAIN [None]
  - CRYING [None]
  - DRUG HYPERSENSITIVITY [None]
  - DYSPNOEA [None]
  - FATIGUE [None]
  - FEELING ABNORMAL [None]
  - HALLUCINATION, AUDITORY [None]
  - HEAD DISCOMFORT [None]
  - MALAISE [None]
  - MUSCULOSKELETAL DISORDER [None]
  - NERVOUS SYSTEM DISORDER [None]
  - PAIN [None]
  - PHOTOPHOBIA [None]
  - POOR PERSONAL HYGIENE [None]
  - READING DISORDER [None]
  - SALIVARY HYPERSECRETION [None]
  - SPEECH DISORDER [None]
  - VISION BLURRED [None]
